FAERS Safety Report 9409852 (Version 1)
Quarter: 2013Q3

REPORT INFORMATION
  Report Type: Spontaneous
  Country: US (occurrence: US)
  Receive Date: 20130719
  Receipt Date: 20130719
  Transmission Date: 20140515
  Serious: Yes (Hospitalization)
  Sender: FDA-Public Use
  Company Number: US-SANOFI-AVENTIS-2013SA072505

PATIENT
  Age: 65 Year
  Sex: Male

DRUGS (2)
  1. LANTUS [Suspect]
     Route: 065
  2. NOVOLOG [Suspect]
     Route: 065

REACTIONS (5)
  - Localised infection [Unknown]
  - Skin ulcer [Unknown]
  - Pain in extremity [Unknown]
  - Fluid retention [Unknown]
  - Weight increased [Unknown]
